FAERS Safety Report 10098992 (Version 1)
Quarter: 2014Q2

REPORT INFORMATION
  Report Type: Spontaneous
  Country: US (occurrence: US)
  Receive Date: 20140423
  Receipt Date: 20140423
  Transmission Date: 20141212
  Serious: No
  Sender: FDA-Public Use
  Company Number: US-BAYER-2014-058874

PATIENT
  Age: 49 Year
  Sex: Female

DRUGS (2)
  1. CIPRO [Suspect]
     Indication: PHARYNGITIS STREPTOCOCCAL
     Dosage: 500 MG, BID
     Dates: start: 20140414
  2. CIPRO [Suspect]
     Indication: EAR INFECTION

REACTIONS (2)
  - Diarrhoea [None]
  - Faeces discoloured [None]
